FAERS Safety Report 20976914 (Version 1)
Quarter: 2022Q2

REPORT INFORMATION
  Report Type: Spontaneous
  Country: US (occurrence: None)
  Receive Date: 20220617
  Receipt Date: 20220617
  Transmission Date: 20220721
  Serious: Yes (Other)
  Sender: FDA-Public Use
  Company Number: 2022A218168

PATIENT
  Age: 863 Month
  Sex: Female
  Weight: 90.7 kg

DRUGS (5)
  1. BYETTA [Suspect]
     Active Substance: EXENATIDE
     Indication: Type 2 diabetes mellitus
     Route: 058
  2. GABAPENTIN [Concomitant]
     Active Substance: GABAPENTIN
  3. OXYCODONE [Concomitant]
     Active Substance: OXYCODONE
  4. NAPROXEN [Concomitant]
     Active Substance: NAPROXEN
  5. TYLENOL [Concomitant]
     Active Substance: ACETAMINOPHEN

REACTIONS (14)
  - Back pain [Unknown]
  - Neuralgia [Unknown]
  - Blood glucose increased [Unknown]
  - Arrhythmia [Unknown]
  - Gait disturbance [Unknown]
  - Thyroid disorder [Unknown]
  - Decreased appetite [Unknown]
  - Nausea [Unknown]
  - Hypoglycaemia [Unknown]
  - Blood glucose abnormal [Unknown]
  - Stress [Unknown]
  - Fall [Unknown]
  - Product availability issue [Unknown]
  - Product dose omission issue [Not Recovered/Not Resolved]

NARRATIVE: CASE EVENT DATE: 20220201
